FAERS Safety Report 14664245 (Version 1)
Quarter: 2018Q1

REPORT INFORMATION
  Report Type: Spontaneous
  Country: US (occurrence: US)
  Receive Date: 20180321
  Receipt Date: 20180321
  Transmission Date: 20180509
  Serious: No
  Sender: FDA-Public Use
  Company Number: US-PFIZER INC-2017434818

PATIENT
  Age: 55 Year
  Sex: Male
  Weight: 120.18 kg

DRUGS (3)
  1. SOMAVERT [Suspect]
     Active Substance: PEGVISOMANT
     Dosage: 60 MG, 1X/DAY
     Route: 058
     Dates: end: 201710
  2. SOMAVERT [Suspect]
     Active Substance: PEGVISOMANT
     Indication: PRODUCT USED FOR UNKNOWN INDICATION
     Dosage: 60 MG, DAILY
     Route: 058
  3. SOMAVERT [Suspect]
     Active Substance: PEGVISOMANT
     Dosage: 60 MG, 1X/DAY
     Route: 058
     Dates: end: 201802

REACTIONS (2)
  - Product use issue [Unknown]
  - Glycosylated haemoglobin increased [Unknown]

NARRATIVE: CASE EVENT DATE: 201802
